FAERS Safety Report 5272505-5 (Version None)
Quarter: 2007Q1

REPORT INFORMATION
  Report Type: 
  Country: None (occurrence: None)
  Receive Date: 20070322
  Receipt Date: 20060530
  Transmission Date: 20070707
  Serious: No
  Sender: FDA-Public Use
  Company Number: US-BRISTOL-MYERS SQUIBB COMPANY-13394036

PATIENT
  Age: 45 Year
  Sex: Male
  Weight: 97 kg

DRUGS (5)
  1. KENALOG [Suspect]
     Indication: ASTHMA
  2. ALLEGRA [Concomitant]
  3. FLONASE [Concomitant]
  4. SINGULAIR [Concomitant]
  5. ADVAIR DISKUS 100/50 [Concomitant]

REACTIONS (2)
  - RASH PAPULAR [None]
  - SWOLLEN TONGUE [None]
